FAERS Safety Report 17946863 (Version 1)
Quarter: 2020Q2

REPORT INFORMATION
  Report Type: Spontaneous
  Country: US (occurrence: US)
  Receive Date: 20200625
  Receipt Date: 20200625
  Transmission Date: 20200714
  Serious: Yes (Other)
  Sender: FDA-Public Use
  Company Number: NVSC2020US176458

PATIENT
  Sex: Female

DRUGS (7)
  1. DOCETAXEL. [Suspect]
     Active Substance: DOCETAXEL
     Indication: HER2 POSITIVE BREAST CANCER
     Dosage: 75 MG/M2  DAY 1 (6 CYCLES)
     Route: 065
  2. LAPATINIB [Suspect]
     Active Substance: LAPATINIB
     Dosage: 750 MG, QD
     Route: 048
  3. TRASTUZUMAB. [Suspect]
     Active Substance: TRASTUZUMAB
     Dosage: 2 MG/KG, QW FOR 17 WEEKS
     Route: 065
  4. TRASTUZUMAB. [Suspect]
     Active Substance: TRASTUZUMAB
     Dosage: 6 MG/KG, Q3W, FOR 12 ADDITIONAL CYCLES
     Route: 065
  5. TRASTUZUMAB. [Suspect]
     Active Substance: TRASTUZUMAB
     Indication: HER2 POSITIVE BREAST CANCER
     Dosage: 4 MG/KG, LOADING DOSE ON WEEK 1
     Route: 065
  6. CARBOPLATIN. [Suspect]
     Active Substance: CARBOPLATIN
     Indication: HER2 POSITIVE BREAST CANCER
     Dosage: (C: AUC OF 6 DAY 1), Q3W FOR 6 CYCLES
     Route: 065
  7. LAPATINIB [Suspect]
     Active Substance: LAPATINIB
     Indication: HER2 POSITIVE BREAST CANCER
     Dosage: 1000 MG, QD, FOR 52 WEEKS
     Route: 048

REACTIONS (2)
  - Left ventricular failure [Unknown]
  - Product use in unapproved indication [Unknown]
